FAERS Safety Report 8086797-0 (Version None)
Quarter: 2012Q1

REPORT INFORMATION
  Report Type: 
  Country: None (occurrence: None)
  Receive Date: 20120128
  Receipt Date: 20110517
  Transmission Date: 20120608
  Serious: No
  Sender: FDA-Public Use
  Company Number: US-ABBOTT-11P-163-0726860-00

PATIENT
  Sex: Female
  Weight: 127.12 kg

DRUGS (8)
  1. PENTASA [Concomitant]
     Indication: CROHN'S DISEASE
  2. IMURAN [Concomitant]
     Indication: CROHN'S DISEASE
  3. GEODON [Concomitant]
     Indication: BIPOLAR DISORDER
  4. HUMIRA [Suspect]
     Indication: CROHN'S DISEASE
     Route: 058
     Dates: start: 20100501
  5. SYMBICORT [Concomitant]
     Indication: ASTHMA
  6. FOLIC ACID [Concomitant]
     Indication: CROHN'S DISEASE
  7. CYMBALTA [Concomitant]
     Indication: DEPRESSION
  8. DEPAKOTE [Concomitant]
     Indication: DEPRESSION

REACTIONS (3)
  - MUSCLE SPASMS [None]
  - DRUG EFFECT DECREASED [None]
  - DIARRHOEA [None]
